FAERS Safety Report 6511187-9 (Version None)
Quarter: 2009Q4

REPORT INFORMATION
  Report Type: 
  Country: None (occurrence: None)
  Receive Date: 20091217
  Receipt Date: 20091211
  Transmission Date: 20100525
  Serious: Yes (Other)
  Sender: FDA-Public Use
  Company Number: 002705

PATIENT
  Sex: Male
  Weight: 73.4 kg

DRUGS (4)
  1. LACOSAMIDE [Suspect]
     Indication: CONVULSION
     Dosage: 100 MG BID ORAL, 200 MG BID ORAL
     Route: 048
     Dates: start: 20091005, end: 20090101
  2. LACOSAMIDE [Suspect]
     Indication: CONVULSION
     Dosage: 100 MG BID ORAL, 200 MG BID ORAL
     Route: 048
     Dates: start: 20090101, end: 20091206
  3. KEPPRA [Suspect]
     Indication: CONVULSION
     Dosage: 200 MG BID ORAL
     Route: 048
     Dates: end: 20091108
  4. TRILEPTAL [Concomitant]

REACTIONS (13)
  - APHASIA [None]
  - CHROMATURIA [None]
  - CONTUSION [None]
  - CRYING [None]
  - FATIGUE [None]
  - GRAND MAL CONVULSION [None]
  - HALLUCINATION, VISUAL [None]
  - HEAD INJURY [None]
  - INTENTIONAL SELF-INJURY [None]
  - OCULAR ICTERUS [None]
  - TREMOR [None]
  - WEIGHT DECREASED [None]
  - YELLOW SKIN [None]
